FAERS Safety Report 23315866 (Version 2)
Quarter: 2024Q1

REPORT INFORMATION
  Report Type: Report from Study
  Country: CN (occurrence: CN)
  Receive Date: 20231219
  Receipt Date: 20240117
  Transmission Date: 20240410
  Serious: No
  Sender: FDA-Public Use
  Company Number: CN-PFIZER INC-PV202300203093

PATIENT
  Age: 84 Year
  Sex: Female

DRUGS (49)
  1. NIRMATRELVIR\RITONAVIR [Suspect]
     Active Substance: NIRMATRELVIR\RITONAVIR
     Indication: COVID-19 treatment
     Dosage: [NIRMATRELVIR 300 MG]/[RITONAVIR 100 MG], 2X/DAY
     Route: 048
     Dates: start: 20220429, end: 20220504
  2. NIRMATRELVIR\RITONAVIR [Suspect]
     Active Substance: NIRMATRELVIR\RITONAVIR
     Dosage: [NIRMATRELVIR 300 MG]/[RITONAVIR 100 MG], 2X/DAY
     Route: 048
     Dates: start: 20220508, end: 20220510
  3. OLMESARTAN MEDOXOMIL [Concomitant]
     Active Substance: OLMESARTAN MEDOXOMIL
     Indication: Decompression sickness
     Dosage: UNK
     Dates: start: 20220418, end: 20220427
  4. OLMESARTAN MEDOXOMIL [Concomitant]
     Active Substance: OLMESARTAN MEDOXOMIL
     Dosage: UNK
     Route: 048
     Dates: start: 20220502, end: 20220502
  5. LOPERAMIDE HYDROCHLORIDE [Concomitant]
     Active Substance: LOPERAMIDE HYDROCHLORIDE
     Indication: Antidiarrhoeal supportive care
     Dosage: UNK
     Route: 048
     Dates: start: 20220419, end: 20220423
  6. VITAMIN B6 [Concomitant]
     Active Substance: PYRIDOXINE HYDROCHLORIDE
     Indication: Fluid replacement
     Dosage: UNK
     Route: 042
     Dates: start: 20220426, end: 20220430
  7. VITAMIN B6 [Concomitant]
     Active Substance: PYRIDOXINE HYDROCHLORIDE
     Dosage: UNK
     Route: 042
     Dates: start: 20220426, end: 20220426
  8. CEFEPIME HYDROCHLORIDE [Concomitant]
     Active Substance: CEFEPIME HYDROCHLORIDE
     Indication: Infection
     Dosage: UNK
     Route: 042
     Dates: start: 20220424, end: 20220430
  9. CEFEPIME HYDROCHLORIDE [Concomitant]
     Active Substance: CEFEPIME HYDROCHLORIDE
     Dosage: UNK
     Route: 042
     Dates: start: 20220430, end: 20220510
  10. MOXIFLOXACIN HYDROCHLORIDE [Concomitant]
     Active Substance: MOXIFLOXACIN HYDROCHLORIDE\MOXIFLOXACIN HYDROCHLORIDE MONOHYDRATE
     Indication: Infection
     Dosage: UNK
     Route: 042
     Dates: start: 20220421, end: 20220502
  11. MOXIFLOXACIN HYDROCHLORIDE [Concomitant]
     Active Substance: MOXIFLOXACIN HYDROCHLORIDE\MOXIFLOXACIN HYDROCHLORIDE MONOHYDRATE
     Dosage: UNK
     Route: 042
     Dates: start: 20220421, end: 20220421
  12. OXYGEN [Concomitant]
     Active Substance: OXYGEN
     Indication: COVID-19
     Dosage: UNK
     Dates: start: 20220421, end: 20220510
  13. POTASSIUM CHLORIDE [Concomitant]
     Active Substance: POTASSIUM CHLORIDE
     Indication: Mineral supplementation
     Dosage: UNK
     Route: 042
     Dates: start: 20220425, end: 20220425
  14. POTASSIUM CHLORIDE [Concomitant]
     Active Substance: POTASSIUM CHLORIDE
     Dosage: UNK
     Route: 042
     Dates: start: 20220426, end: 20220426
  15. POTASSIUM CHLORIDE [Concomitant]
     Active Substance: POTASSIUM CHLORIDE
     Dosage: UNK
     Route: 042
     Dates: start: 20220430, end: 20220510
  16. CALCIUM ASCORBATE [Concomitant]
     Active Substance: CALCIUM ASCORBATE
     Indication: Mineral supplementation
     Dosage: UNK
     Route: 042
     Dates: start: 20220426, end: 20220510
  17. CALCIUM ASCORBATE [Concomitant]
     Active Substance: CALCIUM ASCORBATE
     Dosage: UNK
     Route: 042
     Dates: start: 20220426, end: 20220426
  18. MONTMORILLONITE [Concomitant]
     Active Substance: MONTMORILLONITE
     Indication: Antidiarrhoeal supportive care
     Dosage: POWDER
     Route: 048
     Dates: start: 20220417, end: 20220417
  19. MONTMORILLONITE [Concomitant]
     Active Substance: MONTMORILLONITE
     Dosage: POWDER
     Route: 048
     Dates: start: 20220420, end: 20220420
  20. MONTMORILLONITE [Concomitant]
     Active Substance: MONTMORILLONITE
     Dosage: POWDER
     Route: 048
     Dates: start: 20220428, end: 20220510
  21. MONTMORILLONITE [Concomitant]
     Active Substance: MONTMORILLONITE
     Dosage: POWDER
     Route: 048
     Dates: start: 20220501, end: 20220510
  22. RABEPRAZOLE SODIUM [Concomitant]
     Active Substance: RABEPRAZOLE SODIUM
     Indication: Prophylaxis
     Dosage: ENTERIC-COATED
     Route: 048
     Dates: start: 20220430, end: 20220502
  23. BUDESONIDE [Concomitant]
     Active Substance: BUDESONIDE
     Indication: Antiinflammatory therapy
     Dosage: SUSPENSION FOR INHALATION
     Dates: start: 20220501, end: 20220510
  24. IPRATROPIUM BROMIDE [Concomitant]
     Active Substance: IPRATROPIUM BROMIDE\IPRATROPIUM BROMIDE ANHYDROUS
     Indication: Asthma
     Dosage: SOLUTION FOR INHALATION
     Dates: start: 20220501, end: 20220510
  25. CHYMOTRYPSIN [Concomitant]
     Active Substance: CHYMOTRYPSIN
     Indication: Productive cough
     Dosage: INHALATION
     Dates: start: 20220501, end: 20220510
  26. HERBALS\MENTHOL [Concomitant]
     Active Substance: HERBALS\MENTHOL
     Indication: COVID-19
     Dosage: UNK
     Route: 048
     Dates: start: 20220414, end: 20220414
  27. HERBALS\MENTHOL [Concomitant]
     Active Substance: HERBALS\MENTHOL
     Dosage: UNK
     Route: 048
     Dates: start: 20220422, end: 20220422
  28. HERBALS\MENTHOL [Concomitant]
     Active Substance: HERBALS\MENTHOL
     Dosage: UNK
     Route: 048
     Dates: start: 20220424, end: 20220424
  29. HEPARIN SODIUM [Concomitant]
     Active Substance: HEPARIN SODIUM
     Indication: COVID-19
     Dosage: UNK
     Dates: start: 20220501, end: 20220504
  30. HEPARIN SODIUM [Concomitant]
     Active Substance: HEPARIN SODIUM
     Dosage: UNK
     Dates: start: 20220504, end: 20220510
  31. PREDNISONE ACETATE [Concomitant]
     Active Substance: PREDNISONE ACETATE
     Indication: COVID-19
     Dosage: UNK
     Route: 048
     Dates: start: 20220502, end: 20220504
  32. OMEPRAZOLE SODIUM [Concomitant]
     Active Substance: OMEPRAZOLE SODIUM
     Indication: Prophylaxis
     Dosage: UNK
     Route: 042
     Dates: start: 20220502, end: 20220504
  33. NIFEDIPINE [Concomitant]
     Active Substance: NIFEDIPINE
     Indication: Decompression sickness
     Dosage: CONTROLLED-RELEASE
     Route: 048
     Dates: start: 20220414, end: 20220414
  34. NIFEDIPINE [Concomitant]
     Active Substance: NIFEDIPINE
     Dosage: CONTROLLED-RELEASE
     Route: 048
     Dates: start: 20220502, end: 20220508
  35. NIFEDIPINE [Concomitant]
     Active Substance: NIFEDIPINE
     Dosage: CONTROLLED-RELEASE
     Route: 048
     Dates: start: 20220507, end: 20220507
  36. IRON SUCROSE [Concomitant]
     Active Substance: IRON SUCROSE
     Indication: Mineral supplementation
     Dosage: UNK
     Route: 042
     Dates: start: 20220505, end: 20220510
  37. IRON SUCROSE [Concomitant]
     Active Substance: IRON SUCROSE
     Indication: Myelosuppression
  38. THYMALFASIN [Concomitant]
     Active Substance: THYMALFASIN
     Indication: COVID-19
     Dosage: UNK
     Route: 058
     Dates: start: 20220505, end: 20220510
  39. OLMESARTAN MEDOXOMIL AND AMLODIPINE BESYLATE [Concomitant]
     Indication: Decompression sickness
     Dosage: UNK
     Route: 048
     Dates: start: 20220508, end: 20220510
  40. OLMESARTAN MEDOXOMIL AND AMLODIPINE BESYLATE [Concomitant]
     Dosage: UNK
     Route: 048
     Dates: start: 20220508, end: 20220508
  41. HEMOCOAGULASE BOTHROPS ATROX [Concomitant]
     Indication: Haemostasis
     Dosage: UNK
     Route: 050
     Dates: start: 20220427, end: 20220427
  42. FUROSEMIDE [Concomitant]
     Active Substance: FUROSEMIDE
     Indication: Polyuria
     Dosage: UNK
     Route: 042
     Dates: start: 20220427, end: 20220428
  43. FUROSEMIDE [Concomitant]
     Active Substance: FUROSEMIDE
     Dosage: UNK
     Route: 042
     Dates: start: 20220506, end: 20220506
  44. FUROSEMIDE [Concomitant]
     Active Substance: FUROSEMIDE
     Dosage: UNK
     Route: 042
     Dates: start: 20220508, end: 20220508
  45. ALBUMIN HUMAN [Concomitant]
     Active Substance: ALBUMIN HUMAN
     Indication: Nutritional supplementation
     Dosage: UNK
     Route: 042
     Dates: start: 20220430, end: 20220430
  46. ALBUMIN HUMAN [Concomitant]
     Active Substance: ALBUMIN HUMAN
     Dosage: UNK
     Route: 042
     Dates: start: 20220506, end: 20220506
  47. ALBUMIN HUMAN [Concomitant]
     Active Substance: ALBUMIN HUMAN
     Dosage: UNK
     Route: 042
     Dates: start: 20220508, end: 20220508
  48. COMPOUND CHLORHEXIDINE GARGLE [Concomitant]
     Indication: Therapeutic gargle
     Dosage: UNK
     Dates: start: 20220430, end: 20220430
  49. RABEPRAZOLE SODIUM [Concomitant]
     Active Substance: RABEPRAZOLE SODIUM
     Indication: Prophylaxis
     Dosage: ENTERIC CAPSULES
     Route: 048
     Dates: start: 20220430, end: 20220430

REACTIONS (1)
  - Overdose [Unknown]
